FAERS Safety Report 23092670 (Version 1)
Quarter: 2023Q4

REPORT INFORMATION
  Report Type: Spontaneous
  Country: FR (occurrence: FR)
  Receive Date: 20231021
  Receipt Date: 20231021
  Transmission Date: 20240110
  Serious: Yes (Death)
  Sender: FDA-Public Use
  Company Number: None

PATIENT
  Age: 79 Year
  Sex: Female
  Weight: 79 kg

DRUGS (9)
  1. ONDANSETRON [Suspect]
     Active Substance: ONDANSETRON
     Indication: Prophylaxis of nausea and vomiting
     Dates: start: 20230820, end: 20230827
  2. CASPOFUNGIN [Suspect]
     Active Substance: CASPOFUNGIN
     Indication: Systemic candida
     Dates: start: 20230820, end: 20230827
  3. LEVOFLOXACIN [Suspect]
     Active Substance: LEVOFLOXACIN
     Indication: Sepsis
     Dosage: 1000 MILLIGRAM DAILY; 500 MG 2 TIMES A DAY
     Dates: start: 20230820, end: 20230825
  4. VENETOCLAX [Suspect]
     Active Substance: VENETOCLAX
     Indication: Acute myeloid leukaemia
     Dates: start: 20230825, end: 20230826
  5. VENETOCLAX [Suspect]
     Active Substance: VENETOCLAX
     Dates: start: 20230823, end: 20230824
  6. VENETOCLAX [Suspect]
     Active Substance: VENETOCLAX
     Dates: start: 20230827, end: 20230827
  7. VIDAZA [Suspect]
     Active Substance: AZACITIDINE
     Indication: Acute myeloid leukaemia
     Dosage: 140 MILLIGRAM DAILY; 70MG 2 TIMES A DAY, VIDAZA 100 MG, POWDER FOR SUSPENSION FOR INJECTION
     Dates: start: 20230823, end: 20230827
  8. SPIRAMYCIN [Suspect]
     Active Substance: SPIRAMYCIN
     Indication: Sepsis
     Dosage: 3 MIU 3 TIMES A DAY, ROVAMYCINE 3 MILLION U I, FILM-COATED TABLET
     Dates: start: 20230825, end: 20230828
  9. VANCOMYCIN [Suspect]
     Active Substance: VANCOMYCIN
     Indication: Sepsis
     Dates: start: 20230820, end: 20230827

REACTIONS (2)
  - Jaundice [Fatal]
  - Hyperbilirubinaemia [Fatal]

NARRATIVE: CASE EVENT DATE: 20230828
